FAERS Safety Report 16082866 (Version 2)
Quarter: 2019Q2

REPORT INFORMATION
  Report Type: Spontaneous
  Country: FR (occurrence: FR)
  Receive Date: 20190318
  Receipt Date: 20190402
  Transmission Date: 20190711
  Serious: Yes (Other)
  Sender: FDA-Public Use
  Company Number: FR-ZYDUS-034629

PATIENT
  Age: 99 Year
  Sex: Female

DRUGS (7)
  1. PANTOPRAZOLE [Concomitant]
     Active Substance: PANTOPRAZOLE
     Indication: PRODUCT USED FOR UNKNOWN INDICATION
     Dosage: ONE DOSAGE FORM IN THE EVENING
  2. OXAZEPAM. [Concomitant]
     Active Substance: OXAZEPAM
     Indication: HYPNOTHERAPY
     Dosage: ONE DOSAGE FORM AT NIGHT
  3. FUROSEMIDE. [Concomitant]
     Active Substance: FUROSEMIDE
     Indication: PRODUCT USED FOR UNKNOWN INDICATION
     Route: 048
  4. PARACETAMOL [Concomitant]
     Active Substance: ACETAMINOPHEN
     Indication: PRODUCT USED FOR UNKNOWN INDICATION
     Route: 048
  5. MACROGOL [Concomitant]
     Active Substance: POLYETHYLENE GLYCOLS
     Indication: PRODUCT USED FOR UNKNOWN INDICATION
     Route: 048
  6. RISPERIDONE. [Suspect]
     Active Substance: RISPERIDONE
     Indication: HALLUCINATION
     Dosage: 1 TABLET DAILY IN THE MORNING
     Dates: start: 2011
  7. POTASSIUM CHLORIDE. [Concomitant]
     Active Substance: POTASSIUM CHLORIDE
     Indication: PRODUCT USED FOR UNKNOWN INDICATION
     Dosage: 2 DOSAGE FORM IN THE MORNING
     Route: 048

REACTIONS (4)
  - Impaired gastric emptying [Unknown]
  - Oesophagitis [Unknown]
  - Gastric dilatation [Unknown]
  - Vomiting [Recovered/Resolved]
